FAERS Safety Report 7359092-2 (Version None)
Quarter: 2011Q1

REPORT INFORMATION
  Report Type: 
  Country: None (occurrence: None)
  Receive Date: 20110317
  Receipt Date: 20110216
  Transmission Date: 20110831
  Serious: Yes (Other)
  Sender: FDA-Public Use
  Company Number: US-BAYER-201029566NA

PATIENT
  Sex: Female

DRUGS (2)
  1. YASMIN [Suspect]
     Indication: PRODUCT USED FOR UNKNOWN INDICATION
     Dosage: UNK UNK, QD
     Route: 048
  2. YAZ [Suspect]
     Indication: PRODUCT USED FOR UNKNOWN INDICATION
     Route: 048

REACTIONS (6)
  - BILIARY DYSKINESIA [None]
  - GALLBLADDER NON-FUNCTIONING [None]
  - CHOLECYSTITIS [None]
  - GALLBLADDER DISORDER [None]
  - PANCREATITIS ACUTE [None]
  - CHOLELITHIASIS [None]
